FAERS Safety Report 25597660 (Version 1)
Quarter: 2025Q3

REPORT INFORMATION
  Report Type: Spontaneous
  Country: JP (occurrence: JP)
  Receive Date: 20250723
  Receipt Date: 20250723
  Transmission Date: 20251020
  Serious: Yes (Hospitalization, Other)
  Sender: ELI LILLY AND COMPANY
  Company Number: JP-NShinyaku-EVA202509816ZZLILLY

PATIENT
  Age: 45 Year
  Sex: Female

DRUGS (2)
  1. TADALAFIL [Suspect]
     Active Substance: TADALAFIL
     Indication: Pulmonary arterial hypertension
     Route: 048
  2. OPSUMIT [Concomitant]
     Active Substance: MACITENTAN
     Route: 048

REACTIONS (11)
  - Cardiac failure [Unknown]
  - Weight decreased [Unknown]
  - Pulmonary arterial hypertension [Unknown]
  - Anaemia [Unknown]
  - Hypokalaemia [Unknown]
  - Exercise tolerance decreased [Unknown]
  - Right ventricular enlargement [Unknown]
  - Right ventricular ejection fraction decreased [Unknown]
  - Malnutrition [Unknown]
  - Quality of life decreased [Unknown]
  - Asthenia [Unknown]
